FAERS Safety Report 7564283-1 (Version None)
Quarter: 2011Q2

REPORT INFORMATION
  Report Type: 
  Country: None (occurrence: None)
  Receive Date: 20110622
  Receipt Date: 20110609
  Transmission Date: 20111010
  Serious: Yes (Hospitalization, Other)
  Sender: FDA-Public Use
  Company Number: PHHY2010BR75697

PATIENT
  Age: 71 Year
  Sex: Female

DRUGS (2)
  1. EXFORGE [Suspect]
     Indication: HYPERTENSION
     Dosage: 160 MG OF CALSARTAN AND 5 MG OF AMLODIPINE, DAILY
  2. DIOVAN [Suspect]
     Dosage: 80 MG (2 TABLETS OF 80 MG), DAILY

REACTIONS (2)
  - CEREBROVASCULAR ACCIDENT [None]
  - MEMORY IMPAIRMENT [None]
